FAERS Safety Report 24606326 (Version 1)
Quarter: 2024Q4

REPORT INFORMATION
  Report Type: Spontaneous
  Country: US (occurrence: US)
  Receive Date: 20241112
  Receipt Date: 20241112
  Transmission Date: 20250114
  Serious: No
  Sender: UNITED THERAPEUTICS
  Company Number: US-UNITED THERAPEUTICS-UNT-2024-035383

PATIENT
  Age: 35 Year
  Sex: Male
  Weight: 82.993 kg

DRUGS (21)
  1. REMODULIN [Suspect]
     Active Substance: TREPROSTINIL
     Indication: Pulmonary arterial hypertension
     Dosage: 0.02 ?G/KG, CONTINUING
     Route: 041
  2. REMODULIN [Suspect]
     Active Substance: TREPROSTINIL
     Dosage: UNK, CONTINUING
     Route: 041
  3. MIDODRINE HYDROCHLORIDE [Concomitant]
     Active Substance: MIDODRINE HYDROCHLORIDE
     Indication: Product used for unknown indication
  4. DROXIDOPA [Concomitant]
     Active Substance: DROXIDOPA
     Indication: Product used for unknown indication
  5. LACTULOSE [Concomitant]
     Active Substance: LACTULOSE
     Indication: Product used for unknown indication
  6. OXYCODONE HYDROCHLORIDE [Concomitant]
     Active Substance: OXYCODONE HYDROCHLORIDE
     Indication: Product used for unknown indication
  7. POTASSIUM CHLORIDE [Concomitant]
     Active Substance: POTASSIUM CHLORIDE
     Indication: Product used for unknown indication
  8. XIFAXAN [Concomitant]
     Active Substance: RIFAXIMIN
     Indication: Product used for unknown indication
  9. SODIUM CHLORIDE [Concomitant]
     Active Substance: SODIUM CHLORIDE
     Indication: Product used for unknown indication
  10. OPSUMIT [Concomitant]
     Active Substance: MACITENTAN
     Indication: Product used for unknown indication
  11. CINACALCET HYDROCHLORIDE [Concomitant]
     Active Substance: CINACALCET HYDROCHLORIDE
     Indication: Product used for unknown indication
  12. PANTOPRAZOLE SODIUM [Concomitant]
     Active Substance: PANTOPRAZOLE SODIUM
     Indication: Product used for unknown indication
  13. TADALAFIL [Concomitant]
     Active Substance: TADALAFIL
     Indication: Product used for unknown indication
  14. SEVELAMER CARBONATE [Concomitant]
     Active Substance: SEVELAMER CARBONATE
     Indication: Product used for unknown indication
  15. PROCHLORPERAZINE MALEATE [Concomitant]
     Active Substance: PROCHLORPERAZINE MALEATE
     Indication: Product used for unknown indication
  16. TRAZODONE HCL [Concomitant]
     Active Substance: TRAZODONE HYDROCHLORIDE
     Indication: Product used for unknown indication
  17. OXYGEN [Concomitant]
     Active Substance: OXYGEN
     Indication: Product used for unknown indication
  18. CALCITRIOL [Concomitant]
     Active Substance: CALCITRIOL
     Indication: Product used for unknown indication
  19. GABAPENTIN [Concomitant]
     Active Substance: GABAPENTIN
     Indication: Product used for unknown indication
  20. CYCLOBENZAPRINE HYDROCHLORIDE [Concomitant]
     Active Substance: CYCLOBENZAPRINE HYDROCHLORIDE
     Indication: Product used for unknown indication
  21. LIDOCAINE\PRILOCAINE [Concomitant]
     Active Substance: LIDOCAINE\PRILOCAINE
     Indication: Product used for unknown indication

REACTIONS (2)
  - Muscular weakness [Unknown]
  - Dyspnoea [Unknown]

NARRATIVE: CASE EVENT DATE: 20241104
